FAERS Safety Report 24296015 (Version 1)
Quarter: 2024Q3

REPORT INFORMATION
  Report Type: Spontaneous
  Country: US (occurrence: US)
  Receive Date: 20240909
  Receipt Date: 20240909
  Transmission Date: 20241016
  Serious: Yes (Other)
  Sender: DR REDDYS
  Company Number: US-DRL-USA-SPO/USA/24/0012786

PATIENT
  Age: 3 Year
  Sex: Male

DRUGS (3)
  1. COLCHICINE [Suspect]
     Active Substance: COLCHICINE
     Indication: Pyrexia
  2. COLCHICINE [Suspect]
     Active Substance: COLCHICINE
     Indication: Autoimmune lymphoproliferative syndrome
  3. SIROLIMUS [Suspect]
     Active Substance: SIROLIMUS
     Indication: Autoimmune lymphoproliferative syndrome

REACTIONS (4)
  - Drug ineffective [Unknown]
  - Hypertension [Unknown]
  - Product use in unapproved indication [Unknown]
  - Toxicity to various agents [Unknown]
